FAERS Safety Report 4750955-0 (Version None)
Quarter: 2005Q3

REPORT INFORMATION
  Report Type: 
  Country: None (occurrence: None)
  Receive Date: 20050822
  Receipt Date: 20050812
  Transmission Date: 20060218
  Serious: Yes (Hospitalization)
  Sender: FDA-Public Use
  Company Number: KII-2005-0018060

PATIENT
  Age: 38 Year
  Sex: Female

DRUGS (4)
  1. MORPHINE [Suspect]
     Dosage: ORAL
     Route: 048
  2. CARISOPRODOL (CARISOPRODOL) [Suspect]
     Dosage: ORAL
     Route: 048
  3. BENZODIAZEPINE DERIVATIVES () [Suspect]
     Dosage: ORAL
     Route: 048
  4. HYDROXYZINE [Suspect]
     Dosage: ORAL
     Route: 048

REACTIONS (7)
  - CRYING [None]
  - EMOTIONAL DISTRESS [None]
  - GLASGOW COMA SCALE ABNORMAL [None]
  - MIOSIS [None]
  - MULTIPLE DRUG OVERDOSE [None]
  - PNEUMONIA ASPIRATION [None]
  - SOMNOLENCE [None]
